FAERS Safety Report 5574073-7 (Version None)
Quarter: 2007Q4

REPORT INFORMATION
  Report Type: 
  Country: None (occurrence: None)
  Receive Date: 20071221
  Receipt Date: 20071211
  Transmission Date: 20080405
  Serious: Yes (Hospitalization)
  Sender: FDA-Public Use
  Company Number: 100#08#2007-05200

PATIENT
  Age: 42 Year
  Sex: Male

DRUGS (4)
  1. METRONIDAZOLE [Suspect]
     Indication: HELICOBACTER INFECTION
     Dosage: 400 MG
  2. LANSOPRAZOLE [Concomitant]
  3. AMOXICILLIN [Concomitant]
  4. CLARITHROMYCIN [Concomitant]

REACTIONS (1)
  - MENINGITIS ASEPTIC [None]
